FAERS Safety Report 7793437-4 (Version None)
Quarter: 2011Q4

REPORT INFORMATION
  Report Type: 
  Country: None (occurrence: None)
  Receive Date: 20111003
  Receipt Date: 20110926
  Transmission Date: 20120403
  Serious: Yes (Other)
  Sender: FDA-Public Use
  Company Number: PHHY2011US85532

PATIENT
  Age: 72 Year
  Sex: Female
  Weight: 55 kg

DRUGS (5)
  1. WARFARIN SODIUM [Suspect]
     Indication: ATRIAL FIBRILLATION
     Dosage: 25 MG PER WEEK
  2. ATORVASTATIN [Concomitant]
     Dosage: 10 MG, AT BED TIME
  3. WARFARIN SODIUM [Interacting]
     Dosage: 20 MG PER WEEK
  4. RISEDRONATE SODIUM [Concomitant]
     Dosage: 35 MG, WEEKLY
  5. DRONEDARONE HCL [Interacting]
     Dosage: 400 MG, BID

REACTIONS (3)
  - INTERNATIONAL NORMALISED RATIO INCREASED [None]
  - DRUG INTERACTION [None]
  - DIARRHOEA [None]
